FAERS Safety Report 20407099 (Version 1)
Quarter: 2022Q1

REPORT INFORMATION
  Report Type: Spontaneous
  Country: US (occurrence: None)
  Receive Date: 20220131
  Receipt Date: 20220131
  Transmission Date: 20220423
  Serious: Yes (Hospitalization)
  Sender: FDA-Public Use
  Company Number: None

PATIENT
  Age: 86 Year
  Sex: Female
  Weight: 64 kg

DRUGS (3)
  1. DULOXETINE [Suspect]
     Active Substance: DULOXETINE
     Indication: Depression
     Dosage: FREQUENCY : DAILY;?
     Route: 048
     Dates: start: 20220120, end: 20220127
  2. PROTRIPTYLINE [Suspect]
     Active Substance: PROTRIPTYLINE
     Indication: Depression
     Dosage: FREQUENCY : DAILY;?
     Route: 048
     Dates: start: 20220120, end: 20220127
  3. Levothyroxine 75 mg QD [Concomitant]

REACTIONS (7)
  - Mental status changes [None]
  - Lethargy [None]
  - Fall [None]
  - Slow response to stimuli [None]
  - Hypophagia [None]
  - Dyskinesia [None]
  - Hypertension [None]

NARRATIVE: CASE EVENT DATE: 20220127
